FAERS Safety Report 10894814 (Version 1)
Quarter: 2015Q1

REPORT INFORMATION
  Report Type: Spontaneous
  Country: US (occurrence: US)
  Receive Date: 20150306
  Receipt Date: 20150306
  Transmission Date: 20150721
  Serious: No
  Sender: FDA-Public Use
  Company Number: US-AMGEN-USASP2014027055

PATIENT
  Age: 15 Year
  Sex: Female

DRUGS (1)
  1. ENBREL [Suspect]
     Active Substance: ETANERCEPT
     Indication: PSORIASIS
     Dosage: 50 MG, QWK
     Route: 065
     Dates: start: 20131101

REACTIONS (10)
  - Skin fissures [Not Recovered/Not Resolved]
  - Erythema [Not Recovered/Not Resolved]
  - Eczema [Not Recovered/Not Resolved]
  - Psoriasis [Not Recovered/Not Resolved]
  - Tinea pedis [Recovered/Resolved]
  - Skin exfoliation [Not Recovered/Not Resolved]
  - Pain in extremity [Not Recovered/Not Resolved]
  - Skin irritation [Not Recovered/Not Resolved]
  - Dry skin [Not Recovered/Not Resolved]
  - Arthralgia [Not Recovered/Not Resolved]
